FAERS Safety Report 5414841-5 (Version None)
Quarter: 2007Q3

REPORT INFORMATION
  Report Type: 
  Country: None (occurrence: None)
  Receive Date: 20070815
  Receipt Date: 20070807
  Transmission Date: 20080115
  Serious: Yes (Other)
  Sender: FDA-Public Use
  Company Number: PHBS2007BR13196

PATIENT
  Age: 67 Year
  Sex: Male
  Weight: 76 kg

DRUGS (1)
  1. STALEVO 100 [Suspect]
     Indication: PARKINSON'S DISEASE
     Dosage: 0.5 DF, Q3H
     Route: 048

REACTIONS (8)
  - GAIT DISTURBANCE [None]
  - MUSCLE CONTRACTURE [None]
  - PARKINSON'S DISEASE [None]
  - POLLAKIURIA [None]
  - SLEEP DISORDER [None]
  - SPEECH DISORDER [None]
  - THERAPEUTIC RESPONSE DECREASED [None]
  - WEIGHT DECREASED [None]
